FAERS Safety Report 7713532-5 (Version None)
Quarter: 2011Q3

REPORT INFORMATION
  Report Type: 
  Country: None (occurrence: None)
  Receive Date: 20110826
  Receipt Date: 20110822
  Transmission Date: 20111222
  Serious: Yes (Other)
  Sender: FDA-Public Use
  Company Number: JP-PFIZER INC-2011170493

PATIENT
  Age: 65 Year
  Sex: Male

DRUGS (5)
  1. TEMSIROLIMUS [Suspect]
     Indication: RENAL CELL CARCINOMA
     Dosage: 25 MG, WEEKLY
     Route: 042
     Dates: start: 20110608, end: 20110629
  2. ZOMETA [Concomitant]
     Indication: RENAL CELL CARCINOMA
     Dosage: 4 MG, 1X/DAY
     Route: 042
     Dates: start: 20110603, end: 20110701
  3. POLARAMINE [Concomitant]
     Indication: PROPHYLAXIS
     Dosage: 5 MG, WEEKLY
     Dates: start: 20110608, end: 20110629
  4. CEFOPERAZONE W/SULBACTAM [Concomitant]
     Dosage: 1 G, 2X/DAY
     Route: 042
     Dates: start: 20110621, end: 20110625
  5. FOY [Concomitant]
     Indication: RENAL CELL CARCINOMA
     Dosage: 1500 MG, 1X/DAY
     Route: 042
     Dates: start: 20110615, end: 20110627

REACTIONS (1)
  - HAEMORRHOIDAL HAEMORRHAGE [None]
